FAERS Safety Report 9249834 (Version 3)
Quarter: 2013Q2

REPORT INFORMATION
  Report Type: Spontaneous
  Country: AT (occurrence: AT)
  Receive Date: 20130423
  Receipt Date: 20130607
  Transmission Date: 20140414
  Serious: Yes (Hospitalization, Other)
  Sender: FDA-Public Use
  Company Number: PHHY2013AT037568

PATIENT
  Age: 41 Year
  Sex: Female
  Weight: 104 kg

DRUGS (6)
  1. GILENYA [Suspect]
     Indication: RELAPSING-REMITTING MULTIPLE SCLEROSIS
     Dosage: 0.5 MG, QD
     Route: 048
     Dates: start: 201206, end: 201303
  2. TRITTICO [Concomitant]
     Dosage: 150 MG, UNK
     Route: 048
  3. SIMVASTATIN [Concomitant]
     Dosage: 40 MG, UNK
     Route: 048
  4. CIPRALEX [Concomitant]
     Dosage: 10 MG, UNK
     Route: 048
  5. ZYRTEC [Concomitant]
     Route: 048
  6. THROMBO ASS [Concomitant]
     Route: 048

REACTIONS (5)
  - Apraxia [Unknown]
  - Central nervous system lesion [Recovering/Resolving]
  - Aphasia [Unknown]
  - Speech disorder [Unknown]
  - Drug ineffective [Unknown]
